FAERS Safety Report 8096124-0 (Version None)
Quarter: 2012Q1

REPORT INFORMATION
  Report Type: 
  Country: None (occurrence: None)
  Receive Date: 20120131
  Receipt Date: 20120130
  Transmission Date: 20120608
  Serious: Yes (Hospitalization, Other)
  Sender: FDA-Public Use
  Company Number: US-GLAXOSMITHKLINE-A0952545A

PATIENT
  Age: 51 Year
  Sex: Male

DRUGS (1)
  1. AVANDIA [Suspect]
     Indication: DIABETES MELLITUS

REACTIONS (3)
  - CORONARY ARTERY DISEASE [None]
  - CHEST PAIN [None]
  - DYSPNOEA [None]
